FAERS Safety Report 24004750 (Version 1)
Quarter: 2024Q2

REPORT INFORMATION
  Report Type: Spontaneous
  Country: US (occurrence: US)
  Receive Date: 20240624
  Receipt Date: 20240624
  Transmission Date: 20240716
  Serious: Yes (Other)
  Sender: FDA-Public Use
  Company Number: US-PFIZER INC-202400197607

PATIENT
  Age: 80 Year
  Sex: Male

DRUGS (1)
  1. CAVERJECT IMPULSE [Suspect]
     Active Substance: ALPROSTADIL
     Indication: Erectile dysfunction
     Dosage: 20 UG
     Dates: start: 2021, end: 20240531

REACTIONS (2)
  - Skin cancer [Recovered/Resolved]
  - Drug ineffective [Unknown]
